FAERS Safety Report 4476685-0 (Version None)
Quarter: 2004Q4

REPORT INFORMATION
  Report Type: 
  Country: None (occurrence: None)
  Receive Date: 20041013
  Receipt Date: 20040723
  Transmission Date: 20050328
  Serious: Yes (Other)
  Sender: FDA-Public Use
  Company Number: S04-USA-05753-00

PATIENT
  Sex: Male

DRUGS (1)
  1. NAMENDA [Suspect]
     Indication: DEMENTIA ALZHEIMER'S TYPE

REACTIONS (3)
  - HALLUCINATION, VISUAL [None]
  - MACULAR DEGENERATION [None]
  - VISUAL DISTURBANCE [None]
